FAERS Safety Report 5630615-4 (Version None)
Quarter: 2008Q1

REPORT INFORMATION
  Report Type: 
  Country: None (occurrence: None)
  Receive Date: 20080219
  Receipt Date: 20080219
  Transmission Date: 20080703
  Serious: Yes (Hospitalization)
  Sender: FDA-Public Use
  Company Number: None

PATIENT
  Age: 63 Year
  Sex: Male

DRUGS (2)
  1. HEPARIN [Suspect]
     Dosage: 25000UNITS EVERYDAY IV
     Route: 042
     Dates: start: 20070625, end: 20070630
  2. SOTALOL HCL [Suspect]
     Dosage: 80MG BID PO
     Route: 048
     Dates: start: 20070628, end: 20070630

REACTIONS (4)
  - FATIGUE [None]
  - MALAISE [None]
  - NAUSEA [None]
  - THROMBOCYTOPENIA [None]
